FAERS Safety Report 9443412 (Version 1)
Quarter: 2013Q3

REPORT INFORMATION
  Report Type: Spontaneous
  Country: US (occurrence: None)
  Receive Date: 20130802
  Receipt Date: 20130802
  Transmission Date: 20140515
  Serious: Yes (Other)
  Sender: FDA-Public Use
  Company Number: AUR-APL-2013-06371

PATIENT
  Age: 70 Year
  Sex: Female
  Weight: 49.9 kg

DRUGS (2)
  1. ATENOLOL [Suspect]
     Indication: PRODUCT USED FOR UNKNOWN INDICATION
  2. LISINOPRIL [Suspect]
     Route: 048
     Dates: end: 201303

REACTIONS (8)
  - Paraesthesia oral [None]
  - Urticaria [None]
  - Erythema [None]
  - Skin exfoliation [None]
  - Face oedema [None]
  - Eye disorder [None]
  - Paraesthesia [None]
  - Lip swelling [None]
